FAERS Safety Report 16051564 (Version 1)
Quarter: 2019Q1

REPORT INFORMATION
  Report Type: Spontaneous
  Country: US (occurrence: US)
  Receive Date: 20190308
  Receipt Date: 20190308
  Transmission Date: 20190418
  Serious: No
  Sender: FDA-Public Use
  Company Number: US-TEVA-2019-US-1012193

PATIENT
  Sex: Female

DRUGS (1)
  1. ZALEPLON. [Suspect]
     Active Substance: ZALEPLON
     Dosage: 20 MILLIGRAM DAILY;
     Route: 065

REACTIONS (3)
  - Insomnia [Unknown]
  - Somnambulism [Unknown]
  - Sleep talking [Unknown]
